FAERS Safety Report 18227616 (Version 1)
Quarter: 2020Q3

REPORT INFORMATION
  Report Type: Spontaneous
  Country: US (occurrence: US)
  Receive Date: 20200903
  Receipt Date: 20200903
  Transmission Date: 20201103
  Serious: No
  Sender: FDA-Public Use
  Company Number: None

PATIENT
  Age: 81 Year
  Sex: Male

DRUGS (1)
  1. LONSURF [Suspect]
     Active Substance: TIPIRACIL HYDROCHLORIDE\TRIFLURIDINE
     Dosage: ?          OTHER DOSE:20?8.19;?
     Route: 048
     Dates: start: 20200401

REACTIONS (2)
  - Decreased appetite [None]
  - Disease progression [None]

NARRATIVE: CASE EVENT DATE: 20200902
